FAERS Safety Report 17079440 (Version 1)
Quarter: 2019Q4

REPORT INFORMATION
  Report Type: Spontaneous
  Country: US (occurrence: US)
  Receive Date: 20191127
  Receipt Date: 20191127
  Transmission Date: 20200122
  Serious: No
  Sender: FDA-Public Use
  Company Number: US-UCBSA-2019032260

PATIENT
  Age: 51 Year
  Sex: Female

DRUGS (5)
  1. VIMPAT [Suspect]
     Active Substance: LACOSAMIDE
     Indication: DYSKINESIA
  2. BRIVIACT [Suspect]
     Active Substance: BRIVARACETAM
     Indication: OFF LABEL USE
  3. VIMPAT [Suspect]
     Active Substance: LACOSAMIDE
     Indication: OFF LABEL USE
  4. BRIVIACT [Suspect]
     Active Substance: BRIVARACETAM
     Indication: DYSKINESIA
     Dosage: UNK
     Dates: start: 2019
  5. VIMPAT [Suspect]
     Active Substance: LACOSAMIDE
     Indication: MUSCLE SPASMS
     Dosage: UNK
     Dates: start: 20190623, end: 2019

REACTIONS (2)
  - Off label use [Unknown]
  - Drug ineffective [Unknown]

NARRATIVE: CASE EVENT DATE: 2019
